FAERS Safety Report 20063383 (Version 1)
Quarter: 2021Q4

REPORT INFORMATION
  Report Type: Spontaneous
  Country: US (occurrence: US)
  Receive Date: 20211112
  Receipt Date: 20211112
  Transmission Date: 20220303
  Serious: Yes (Life-Threatening, Hospitalization)
  Sender: FDA-Public Use
  Company Number: US-ORG100016242-2021000603

PATIENT
  Age: 37 Year
  Sex: Female

DRUGS (3)
  1. EXPAREL [Suspect]
     Active Substance: BUPIVACAINE
     Dosage: 266MG OF EXPAREL ADMIXED WITH 20 ML OF LIDOCAINE AND EXPANDED WITH 60 ML OF NORMAL SALINE
     Route: 050
     Dates: start: 20211101, end: 20211101
  2. LIDOCAINE [Suspect]
     Active Substance: LIDOCAINE
     Dosage: 20 ML ADMIXED WITH 20 ML OF EXPAREL AND EXPANDED WITH 60 ML OF NORMAL SALINE
     Route: 050
     Dates: start: 20211101, end: 20211101
  3. SODIUM CHLORIDE [Concomitant]
     Active Substance: SODIUM CHLORIDE
     Dosage: 60 ML ADMIXED WITH 20 ML OF EXPAREL AND 20 ML OF LIDOCAINE
     Route: 050
     Dates: start: 20211101, end: 20211101

REACTIONS (7)
  - Aneurysm [Recovering/Resolving]
  - Splenic artery aneurysm [Recovering/Resolving]
  - Retroperitoneal haemorrhage [Recovering/Resolving]
  - Hypotension [Recovering/Resolving]
  - Cardio-respiratory arrest [Recovering/Resolving]
  - Haemoglobin decreased [Recovering/Resolving]
  - Labelled drug-drug interaction medication error [Unknown]

NARRATIVE: CASE EVENT DATE: 20211101
